FAERS Safety Report 4281052-9 (Version None)
Quarter: 2004Q1

REPORT INFORMATION
  Report Type: 
  Country: None (occurrence: None)
  Receive Date: 20040112
  Receipt Date: 20030918
  Transmission Date: 20041129
  Serious: Yes (Other)
  Sender: FDA-Public Use
  Company Number: 347425

PATIENT
  Age: 44 Year
  Sex: Male
  Weight: 77.1 kg

DRUGS (5)
  1. FUZEON [Suspect]
     Indication: HIV INFECTION
     Dosage: 1 CC 2 PER DAY, SUBCUTANEOUS
     Route: 058
     Dates: start: 20030917
  2. ANTIRETROVIRAL NOS (ANTIRETROVIRAL NOS) [Concomitant]
  3. EMETROL (DEXTROSE/FRUCTOSE/PHOSPHORIC ACID) [Concomitant]
  4. IMODIIUM A-D (LOPERAMIDE HYDROCHLORIDE) [Concomitant]
  5. DIFLUCAN [Concomitant]

REACTIONS (25)
  - AMNESIA [None]
  - ASTHENIA [None]
  - CHEST DISCOMFORT [None]
  - CONSTIPATION [None]
  - DEPRESSION [None]
  - DIARRHOEA [None]
  - DYSPNOEA [None]
  - ERUCTATION [None]
  - ERYTHEMA [None]
  - FATIGUE [None]
  - FEELING HOT [None]
  - FEELING JITTERY [None]
  - FLATULENCE [None]
  - HEADACHE [None]
  - HEART RATE INCREASED [None]
  - INJECTION SITE DISCOMFORT [None]
  - INJECTION SITE HAEMORRHAGE [None]
  - INJECTION SITE REACTION [None]
  - LACRIMATION INCREASED [None]
  - LIMB DISCOMFORT [None]
  - MEDICATION ERROR [None]
  - NAUSEA [None]
  - OCULAR ICTERUS [None]
  - PRURITUS [None]
  - SOMNOLENCE [None]
